FAERS Safety Report 9863756 (Version 3)
Quarter: 2014Q1

REPORT INFORMATION
  Report Type: Report from Study
  Country: US (occurrence: KR)
  Receive Date: 20140203
  Receipt Date: 20140214
  Transmission Date: 20141002
  Serious: Yes (Hospitalization)
  Sender: FDA-Public Use
  Company Number: KR-FRI-1000047819

PATIENT
  Age: 69 Year
  Sex: Male
  Weight: 50 kg

DRUGS (11)
  1. ROFLUMILAST [Suspect]
     Indication: CHRONIC OBSTRUCTIVE PULMONARY DISEASE
     Dosage: 500 MCG
     Route: 048
     Dates: start: 20130710
  2. SERETIDE [Concomitant]
     Indication: CHRONIC OBSTRUCTIVE PULMONARY DISEASE
     Route: 055
     Dates: start: 20090518
  3. SPIRIVA HANDIHALER [Concomitant]
     Indication: CHRONIC OBSTRUCTIVE PULMONARY DISEASE
     Route: 055
     Dates: start: 20090518
  4. AVENTRO [Concomitant]
     Indication: CHRONIC OBSTRUCTIVE PULMONARY DISEASE
     Dosage: 2500 MG
     Route: 055
     Dates: start: 20120612
  5. VENTOLIN NEBULES [Concomitant]
     Indication: CHRONIC OBSTRUCTIVE PULMONARY DISEASE
     Route: 055
     Dates: start: 20111222
  6. NISOLONE [Concomitant]
     Indication: CHRONIC OBSTRUCTIVE PULMONARY DISEASE
     Route: 048
     Dates: start: 20130710
  7. MEGACE [Concomitant]
     Indication: DECREASED APPETITE
     Route: 048
     Dates: start: 20130710
  8. PANTOLOC [Concomitant]
     Indication: DYSPEPSIA
     Route: 048
     Dates: start: 20130626
  9. WAFARIN [Concomitant]
     Indication: HYPERTENSION
     Route: 048
     Dates: start: 20130527
  10. SOMETO [Concomitant]
     Indication: BENIGN PROSTATIC HYPERPLASIA
     Route: 048
     Dates: start: 20120622
  11. THRUPAS [Concomitant]
     Indication: BENIGN PROSTATIC HYPERPLASIA
     Route: 048
     Dates: start: 20130710

REACTIONS (3)
  - Pneumonia [Recovered/Resolved]
  - Dyspnoea [Recovered/Resolved]
  - Chronic obstructive pulmonary disease [Recovered/Resolved]
